FAERS Safety Report 23502217 (Version 2)
Quarter: 2024Q1

REPORT INFORMATION
  Report Type: Spontaneous
  Country: US (occurrence: US)
  Receive Date: 20240208
  Receipt Date: 20240311
  Transmission Date: 20240409
  Serious: No
  Sender: FDA-Public Use
  Company Number: US-PFIZER INC-202400018446

PATIENT
  Age: 17 Year
  Sex: Male

DRUGS (1)
  1. GENOTROPIN [Suspect]
     Active Substance: SOMATROPIN
     Dosage: 1.4 MG, ALTERNATE DAY (ALT 1.2 AND 1.4 MG QOD)

REACTIONS (4)
  - Wrong technique in device usage process [Unknown]
  - Poor quality device used [Unknown]
  - Incorrect dose administered [Unknown]
  - Device information output issue [Unknown]
